FAERS Safety Report 16950945 (Version 1)
Quarter: 2019Q4

REPORT INFORMATION
  Report Type: Spontaneous
  Country: US (occurrence: US)
  Receive Date: 20190903
  Receipt Date: 20190903
  Transmission Date: 20200122
  Serious: No
  Sender: FDA-Public Use
  Company Number: None

PATIENT
  Age: 64 Year
  Sex: Female
  Weight: 49.9 kg

DRUGS (1)
  1. BUPRENORPHINE-NALOXONE 8-2MG SUBLINGUAL FILM [Suspect]
     Active Substance: BUPRENORPHINE HYDROCHLORIDE\NALOXONE HYDROCHLORIDE
     Indication: DRUG DEPENDENCE
     Dates: start: 20161005

REACTIONS (3)
  - Nausea [None]
  - Salivary hypersecretion [None]
  - Weight decreased [None]

NARRATIVE: CASE EVENT DATE: 20190405
